FAERS Safety Report 4619550-8 (Version None)
Quarter: 2005Q1

REPORT INFORMATION
  Report Type: 
  Country: None (occurrence: None)
  Receive Date: 20050324
  Receipt Date: 20050311
  Transmission Date: 20050727
  Serious: No
  Sender: FDA-Public Use
  Company Number: 213046

PATIENT
  Age: 49 Year
  Sex: Male
  Weight: 71.2 kg

DRUGS (3)
  1. AVASTIN [Suspect]
     Dosage: 350 MG, Q2W, INTRAVENOUS
     Route: 042
     Dates: start: 20040423, end: 20041207
  2. FLUOROURACIL [Concomitant]
  3. LEUCOVORIN CALCIUM [Concomitant]

REACTIONS (2)
  - BLOOD POTASSIUM DECREASED [None]
  - PNEUMATOSIS CYSTOIDES INTESTINALIS [None]
